FAERS Safety Report 13080948 (Version 2)
Quarter: 2017Q1

REPORT INFORMATION
  Report Type: Spontaneous
  Country: US (occurrence: US)
  Receive Date: 20170103
  Receipt Date: 20170322
  Transmission Date: 20170428
  Serious: Yes (Death, Hospitalization, Other)
  Sender: FDA-Public Use
  Company Number: GXBR2016US003665

PATIENT
  Age: 72 Year
  Sex: Male

DRUGS (1)
  1. AMIODARONE HYDROCHLORIDE. [Suspect]
     Active Substance: AMIODARONE HYDROCHLORIDE
     Indication: ATRIAL FIBRILLATION
     Dosage: 200-400MG, UNK
     Route: 065
     Dates: start: 2007, end: 201501

REACTIONS (10)
  - Pulmonary fibrosis [Fatal]
  - Dyspnoea [Fatal]
  - Toxicity to various agents [Fatal]
  - Pulmonary toxicity [Fatal]
  - Hypoxia [Fatal]
  - Respiratory failure [Fatal]
  - Pneumonia [Fatal]
  - Off label use [Unknown]
  - Ventricular tachycardia [Unknown]
  - Atrial fibrillation [Unknown]

NARRATIVE: CASE EVENT DATE: 20140113
